FAERS Safety Report 8114919-1 (Version None)
Quarter: 2012Q1

REPORT INFORMATION
  Report Type: 
  Country: None (occurrence: None)
  Receive Date: 20120206
  Receipt Date: 20120205
  Transmission Date: 20120608
  Serious: No
  Sender: FDA-Public Use
  Company Number: US-PFIZER INC-2012031366

PATIENT
  Sex: Female
  Weight: 77.098 kg

DRUGS (5)
  1. CHANTIX [Suspect]
     Dosage: 0.5 MG, 2X/DAY
     Route: 048
     Dates: start: 20120201
  2. CHANTIX [Suspect]
     Indication: SMOKING CESSATION THERAPY
     Dosage: 0.5 MG, 1X/DAY
     Route: 048
     Dates: start: 20120202, end: 20120201
  3. BENAZEPRIL HCL AND HYDROCHLOROTHIAZIDE [Concomitant]
     Indication: HYPERTENSION
     Dosage: 20/25 MG, 1X/DAY
  4. DIAZEPAM [Concomitant]
     Indication: MUSCULOSKELETAL DISORDER
     Dosage: UNK, 1X/DAY
  5. DIAZEPAM [Concomitant]
     Indication: PAIN

REACTIONS (1)
  - HYPERSOMNIA [None]
